FAERS Safety Report 16478177 (Version 2)
Quarter: 2020Q3

REPORT INFORMATION
  Report Type: Spontaneous
  Country: US (occurrence: US)
  Receive Date: 20190626
  Receipt Date: 20200916
  Transmission Date: 20201102
  Serious: Yes (Hospitalization, Other)
  Sender: FDA-Public Use
  Company Number: US-PFIZER INC-2019271494

PATIENT
  Age: 67 Year
  Sex: Male
  Weight: 76.64 kg

DRUGS (41)
  1. SUTENT [Suspect]
     Active Substance: SUNITINIB MALATE
     Indication: RENAL CELL CARCINOMA
     Dosage: 50 MG, CYCLIC  (DAILY 5 OF 7 DAYS FOR 2 OF 3 WEEKS)
     Route: 048
     Dates: start: 20170619
  2. DIPHENHYDRAMINE HCL [Concomitant]
     Active Substance: DIPHENHYDRAMINE HYDROCHLORIDE
     Indication: AMYLOIDOSIS
  3. DOXYCYCLINE. [Concomitant]
     Active Substance: DOXYCYCLINE
     Indication: CARDIAC AMYLOIDOSIS
     Dosage: 100 MG, 2X/DAY
     Route: 048
     Dates: start: 20180517
  4. POTASSIUM CHLORIDE. [Concomitant]
     Active Substance: POTASSIUM CHLORIDE
     Dosage: 20 MEQ, DAILY
     Route: 048
     Dates: start: 20180806
  5. RANITIDINE HCL [Concomitant]
     Active Substance: RANITIDINE HYDROCHLORIDE
     Indication: AMYLOIDOSIS
  6. URSODIOL. [Concomitant]
     Active Substance: URSODIOL
     Dosage: UNK
  7. EZETIMIBE. [Concomitant]
     Active Substance: EZETIMIBE
     Dosage: UNK
  8. NIFEDIPINE. [Concomitant]
     Active Substance: NIFEDIPINE
     Dosage: UNK
  9. ACETAMINOPHEN. [Concomitant]
     Active Substance: ACETAMINOPHEN
     Indication: CARDIAC AMYLOIDOSIS
     Dosage: 500 MG (AT LEAST 60 MINUTES PRIOR TO ONPATTRO INFUSION EVERY 3 WEEKS)
     Route: 048
     Dates: start: 20181022, end: 201810
  10. ASPIRIN EC [Concomitant]
     Active Substance: ASPIRIN
     Dosage: UNK
     Route: 048
     Dates: start: 20180206
  11. FINASTERIDE. [Concomitant]
     Active Substance: FINASTERIDE
     Dosage: UNK
     Route: 048
     Dates: start: 20170801
  12. FUROSEMIDE. [Concomitant]
     Active Substance: FUROSEMIDE
     Dosage: 20 MG, 2X/DAY
     Route: 048
     Dates: start: 20180806
  13. RANITIDINE HCL [Concomitant]
     Active Substance: RANITIDINE HYDROCHLORIDE
     Indication: CARDIAC AMYLOIDOSIS
     Dosage: 50 MG
     Route: 042
     Dates: start: 20181023
  14. CYCLOBENZAPRINE. [Concomitant]
     Active Substance: CYCLOBENZAPRINE
     Dosage: UNK
  15. DEXAMETHASONE SODIUM PHOSPHATE. [Concomitant]
     Active Substance: DEXAMETHASONE SODIUM PHOSPHATE
     Indication: CARDIAC AMYLOIDOSIS
     Dosage: UNK
     Route: 042
     Dates: start: 20181023
  16. ANDROGEL [Concomitant]
     Active Substance: TESTOSTERONE
     Dosage: UNK (20.25 MG/ACT (1.62%))
     Route: 062
     Dates: start: 20170314
  17. PANTOPRAZOLE SODIUM. [Concomitant]
     Active Substance: PANTOPRAZOLE SODIUM
     Indication: CARDIAC AMYLOIDOSIS
     Dosage: 40 MG, DAILY
     Route: 048
     Dates: start: 20180517
  18. ONPATTRO [Concomitant]
     Active Substance: PATISIRAN SODIUM
     Indication: CARDIAC AMYLOIDOSIS
     Dosage: UNK (UNK10 MG/5M INFUSE AS DIRECTED 0.3 MG/KG EVERY 3 WEEKS 15 ML)
     Route: 042
     Dates: start: 20181106
  19. RANOLAZINE. [Concomitant]
     Active Substance: RANOLAZINE
     Dosage: UNK
  20. MACROBID [CLARITHROMYCIN] [Concomitant]
     Active Substance: CLARITHROMYCIN
     Dosage: UNK
  21. ISOSORBIDE MONONITRATE. [Concomitant]
     Active Substance: ISOSORBIDE MONONITRATE
     Dosage: UNK
  22. KLOR?CON [Concomitant]
     Active Substance: POTASSIUM CHLORIDE
     Dosage: UNK
  23. FERROUS SULFATE. [Concomitant]
     Active Substance: FERROUS SULFATE
     Dosage: UNK
     Route: 048
  24. DIPHENHYDRAMINE HCL [Concomitant]
     Active Substance: DIPHENHYDRAMINE HYDROCHLORIDE
     Indication: CARDIAC AMYLOIDOSIS
     Dosage: UNK
     Dates: start: 20181023
  25. DUTASTERIDE. [Concomitant]
     Active Substance: DUTASTERIDE
     Dosage: 0.5 MG, DAILY
     Route: 048
     Dates: start: 20171019
  26. GABAPENTIN. [Concomitant]
     Active Substance: GABAPENTIN
     Dosage: UNK
  27. DULOXETINE. [Concomitant]
     Active Substance: DULOXETINE
     Dosage: UNK
  28. SUTENT [Suspect]
     Active Substance: SUNITINIB MALATE
     Indication: AMYLOIDOSIS
  29. DEXAMETHASONE SODIUM PHOSPHATE. [Concomitant]
     Active Substance: DEXAMETHASONE SODIUM PHOSPHATE
     Indication: AMYLOIDOSIS
     Dosage: 10 MG
     Route: 042
     Dates: start: 20181022, end: 201810
  30. ACETAMINOPHEN. [Concomitant]
     Active Substance: ACETAMINOPHEN
     Indication: AMYLOIDOSIS
     Dosage: 500 MG
     Route: 048
     Dates: start: 20181023
  31. MIRTAZAPINE. [Concomitant]
     Active Substance: MIRTAZAPINE
     Indication: CARDIAC AMYLOIDOSIS
     Dosage: 15 MG, 1X/DAY (AT BEDTIME)
     Route: 048
     Dates: start: 20190402
  32. NIFEDIPINE (II) [Concomitant]
     Indication: CARDIAC AMYLOIDOSIS
     Dosage: 30 MG
     Route: 048
     Dates: start: 20181030
  33. OXYBUTYNIN CHLORIDE. [Concomitant]
     Active Substance: OXYBUTYNIN CHLORIDE
     Dosage: 10 MG, DAILY
     Route: 048
     Dates: start: 20171003
  34. BUDESONIDE. [Concomitant]
     Active Substance: BUDESONIDE
     Dosage: UNK
     Dates: start: 20171219
  35. ONPATTRO [Concomitant]
     Active Substance: PATISIRAN SODIUM
     Indication: AMYLOIDOSIS
  36. TORSEMIDE. [Concomitant]
     Active Substance: TORSEMIDE
     Dosage: UNK
  37. BYSTOLIC [Concomitant]
     Active Substance: NEBIVOLOL HYDROCHLORIDE
     Dosage: 10 MG, 2X/DAY
     Route: 048
     Dates: start: 20180206
  38. CIALIS [Concomitant]
     Active Substance: TADALAFIL
     Dosage: 5 MG, 1X/DAY
     Route: 048
     Dates: start: 20170307
  39. TAMSULOSIN HCL [Concomitant]
     Active Substance: TAMSULOSIN HYDROCHLORIDE
     Dosage: 0.4 MG
     Route: 048
     Dates: start: 20170801
  40. ZETIA [Concomitant]
     Active Substance: EZETIMIBE
     Dosage: 10 MG
     Route: 048
     Dates: start: 20170404
  41. MYRBETRIQ [Concomitant]
     Active Substance: MIRABEGRON
     Dosage: UNK

REACTIONS (7)
  - Cough [Not Recovered/Not Resolved]
  - Hiccups [Not Recovered/Not Resolved]
  - Cardiac failure chronic [Unknown]
  - Neuropathy peripheral [Unknown]
  - Chest discomfort [Unknown]
  - Diarrhoea [Unknown]
  - Oedema [Unknown]
